FAERS Safety Report 25174251 (Version 1)
Quarter: 2025Q2

REPORT INFORMATION
  Report Type: Spontaneous
  Country: US (occurrence: None)
  Receive Date: 20250408
  Receipt Date: 20250408
  Transmission Date: 20250717
  Serious: Yes (Other)
  Sender: FDA-CTU
  Company Number: None

PATIENT
  Age: 61 Year
  Sex: Female
  Weight: 93.4 kg

DRUGS (12)
  1. DUPIXENT [Suspect]
     Active Substance: DUPILUMAB
     Indication: Asthma
     Route: 058
     Dates: start: 20250309, end: 20250402
  2. albuterol neb solution [Concomitant]
     Dates: start: 20250110
  3. ALPRAZOLAM [Concomitant]
     Active Substance: ALPRAZOLAM
  4. ELIQUIS [Concomitant]
     Active Substance: APIXABAN
     Dates: start: 20240606
  5. ATORVASTATIN [Concomitant]
     Active Substance: ATORVASTATIN
     Dates: start: 20240430
  6. SYMBICORT [Concomitant]
     Active Substance: BUDESONIDE\FORMOTEROL FUMARATE DIHYDRATE
     Dates: start: 20240410
  7. Hydrocdone/APAP 10/325mg [Concomitant]
  8. LEVOTHYROXINE [Concomitant]
     Active Substance: LEVOTHYROXINE
  9. MELOXICAM [Concomitant]
     Active Substance: MELOXICAM
     Dates: start: 20250304
  10. METHOCARBAMOL [Concomitant]
     Active Substance: METHOCARBAMOL
  11. MONTELUKAST SODIUM [Concomitant]
     Active Substance: MONTELUKAST SODIUM
  12. OZEMPIC [Concomitant]
     Active Substance: SEMAGLUTIDE
     Dates: start: 20250219

REACTIONS (3)
  - Swelling face [None]
  - Headache [None]
  - Erythema [None]

NARRATIVE: CASE EVENT DATE: 20250309
